FAERS Safety Report 6718538-0 (Version None)
Quarter: 2010Q2

REPORT INFORMATION
  Report Type: 
  Country: None (occurrence: None)
  Receive Date: 20100510
  Receipt Date: 20100504
  Transmission Date: 20101027
  Serious: Yes (Hospitalization)
  Sender: FDA-Public Use
  Company Number: US-GILEAD-2010-0028632

PATIENT
  Sex: Female
  Weight: 51.756 kg

DRUGS (7)
  1. LETAIRIS [Suspect]
     Indication: PULMONARY ARTERIAL HYPERTENSION
     Route: 048
     Dates: start: 20080722
  2. OXYGEN [Concomitant]
  3. DE-CHLOR DM [Concomitant]
  4. CEFUROXIME AXETIL [Concomitant]
  5. CLINDAMYCIN [Concomitant]
  6. MULTIVITAMIN [Concomitant]
  7. IRON [Concomitant]

REACTIONS (1)
  - GASTROINTESTINAL HAEMORRHAGE [None]
